FAERS Safety Report 24824443 (Version 1)
Quarter: 2025Q1

REPORT INFORMATION
  Report Type: Spontaneous
  Country: CA (occurrence: CA)
  Receive Date: 20250109
  Receipt Date: 20250109
  Transmission Date: 20250408
  Serious: Yes (Death, Life-Threatening, Hospitalization, Other)
  Sender: ACCORD
  Company Number: None

PATIENT
  Sex: Female
  Weight: 69 kg

DRUGS (7)
  1. CAPECITABINE [Suspect]
     Active Substance: CAPECITABINE
     Indication: Adenocarcinoma of colon
     Route: 048
  2. ATORVASTATIN CALCIUM [Concomitant]
     Active Substance: ATORVASTATIN CALCIUM
     Route: 065
  3. CALCIUM CARBONATE\VITAMIN D [Concomitant]
     Active Substance: CALCIUM CARBONATE\VITAMIN D
  4. DEXAMETHASONE [Concomitant]
     Active Substance: DEXAMETHASONE
     Route: 065
  5. LOPERAMIDE [Concomitant]
     Active Substance: LOPERAMIDE
  6. METOCLOPRAMIDE [Concomitant]
     Active Substance: METOCLOPRAMIDE
  7. OXALIPLATIN [Concomitant]
     Active Substance: OXALIPLATIN

REACTIONS (16)
  - Acute kidney injury [Fatal]
  - Diarrhoea [Fatal]
  - Intestinal perforation [Fatal]
  - Neutropenia [Fatal]
  - Cardio-respiratory arrest [Fatal]
  - Delirium [Fatal]
  - Vomiting [Fatal]
  - Colitis [Fatal]
  - Respiratory failure [Fatal]
  - Atrial fibrillation [Fatal]
  - Blood lactic acid increased [Fatal]
  - Depressed level of consciousness [Fatal]
  - Thrombocytopenia [Fatal]
  - Enteritis [Fatal]
  - Intestinal obstruction [Fatal]
  - Dehydration [Fatal]
